FAERS Safety Report 7770362-6 (Version None)
Quarter: 2011Q3

REPORT INFORMATION
  Report Type: 
  Country: None (occurrence: None)
  Receive Date: 20110922
  Receipt Date: 20100803
  Transmission Date: 20111222
  Serious: Yes (Other)
  Sender: FDA-Public Use
  Company Number: US-ASTRAZENECA-2007UW25157

PATIENT
  Age: 534 Month
  Sex: Female
  Weight: 86.6 kg

DRUGS (12)
  1. SEROQUEL [Suspect]
     Indication: DEPRESSION
     Dosage: 20 MG - 40 MG
     Route: 048
     Dates: start: 20060301, end: 20060701
  2. ZOLOFT [Concomitant]
     Dates: start: 20060626
  3. ZOCOR [Concomitant]
     Dates: start: 20060104
  4. LISINOPRIL [Concomitant]
     Dates: start: 20060104
  5. CLONAZEPAM [Concomitant]
     Dates: start: 20060626
  6. LIPITOR [Concomitant]
     Dates: start: 20060112
  7. LORTAB [Concomitant]
     Indication: PAIN
     Dosage: 5 MG EVERY SIX HOURS AS NEEDED
     Dates: start: 20060104
  8. COREG [Concomitant]
     Dates: start: 20060104
  9. SEROQUEL [Suspect]
     Indication: ANXIETY
     Dosage: 20 MG - 40 MG
     Route: 048
     Dates: start: 20060301, end: 20060701
  10. LASIX [Concomitant]
     Dates: start: 20060104
  11. EFFEXOR XR [Concomitant]
     Dates: start: 20050404
  12. ASPIRIN [Concomitant]
     Dates: start: 20060104

REACTIONS (4)
  - ADVERSE DRUG REACTION [None]
  - DIABETES MELLITUS INADEQUATE CONTROL [None]
  - TYPE 2 DIABETES MELLITUS [None]
  - DIABETIC COMPLICATION [None]
